FAERS Safety Report 18287488 (Version 9)
Quarter: 2021Q3

REPORT INFORMATION
  Report Type: Report from Study
  Country: US (occurrence: US)
  Receive Date: 20200921
  Receipt Date: 20210910
  Transmission Date: 20211014
  Serious: No
  Sender: FDA-Public Use
  Company Number: NVSC2020US253396

PATIENT
  Age: 49 Year
  Sex: Male

DRUGS (5)
  1. KESIMPTA [Suspect]
     Active Substance: OFATUMUMAB
     Indication: CLINICALLY ISOLATED SYNDROME
     Dosage: UNK, (INJECTION 1 PEN AT WEEK 2)
     Route: 058
  2. KESIMPTA [Suspect]
     Active Substance: OFATUMUMAB
     Indication: SECONDARY PROGRESSIVE MULTIPLE SCLEROSIS
     Dosage: 20 MG, QW VIAL
     Route: 058
     Dates: start: 202009
  3. KESIMPTA [Suspect]
     Active Substance: OFATUMUMAB
     Indication: MULTIPLE SCLEROSIS
     Dosage: UNK, (INJECTION 1 PEN AT WEEK 1)
     Route: 058
  4. KESIMPTA [Suspect]
     Active Substance: OFATUMUMAB
     Indication: MULTIPLE SCLEROSIS RELAPSE
     Dosage: 20 MG, QMO, (20MG/0.4ML PEN, BENEATH THE SKIN, USUALLY VIA INJECTION)
     Route: 058
     Dates: start: 20200909
  5. KESIMPTA [Suspect]
     Active Substance: OFATUMUMAB
     Indication: RELAPSING-REMITTING MULTIPLE SCLEROSIS
     Dosage: UNK, (INJECTION 1 PEN AT WEEK 3, AS DIRECTED)
     Route: 058

REACTIONS (12)
  - Feeling cold [Recovered/Resolved]
  - Chills [Recovering/Resolving]
  - Asthenia [Recovering/Resolving]
  - Skin sensitisation [Recovering/Resolving]
  - Joint stiffness [Recovering/Resolving]
  - Chest discomfort [Recovered/Resolved]
  - Speech disorder [Recovered/Resolved]
  - Vision blurred [Recovered/Resolved]
  - Muscle spasticity [Recovering/Resolving]
  - Feeling abnormal [Unknown]
  - Photopsia [Unknown]
  - Condition aggravated [Unknown]

NARRATIVE: CASE EVENT DATE: 202009
